FAERS Safety Report 9710410 (Version 1)
Quarter: 2013Q4

REPORT INFORMATION
  Report Type: Spontaneous
  Country: US (occurrence: US)
  Receive Date: 20131126
  Receipt Date: 20131126
  Transmission Date: 20140711
  Serious: No
  Sender: FDA-Public Use
  Company Number: US-BRISTOL-MYERS SQUIBB COMPANY-18977645

PATIENT
  Age: 55 Year
  Sex: Male
  Weight: 156.46 kg

DRUGS (5)
  1. BYDUREON [Suspect]
     Indication: TYPE 2 DIABETES MELLITUS
     Route: 058
     Dates: start: 20130510
  2. GLIMEPIRIDE [Concomitant]
     Route: 048
  3. METFORMIN [Concomitant]
     Route: 048
  4. PLAVIX [Concomitant]
  5. LISINOPRIL [Concomitant]

REACTIONS (1)
  - Dizziness [Not Recovered/Not Resolved]
